FAERS Safety Report 4515285-0 (Version None)
Quarter: 2004Q4

REPORT INFORMATION
  Report Type: 
  Country: None (occurrence: None)
  Receive Date: 20041130
  Receipt Date: 20041130
  Transmission Date: 20050328
  Serious: No
  Sender: FDA-Public Use
  Company Number: None

PATIENT
  Sex: Male

DRUGS (10)
  1. ADENOSCAN [Suspect]
     Indication: CARDIAC STRESS TEST
     Dosage: INTRAVENOU
     Route: 042
     Dates: start: 20040827, end: 20040827
  2. LORATADINE [Concomitant]
  3. OXYCODONE AND ACETAMINOPHEN [Concomitant]
  4. SALSALATE [Concomitant]
  5. OMEPRAZOLE [Concomitant]
  6. APAP TAB [Concomitant]
  7. COMBIVENT [Concomitant]
  8. FLUNISOLIDE [Concomitant]
  9. AMITRIPTYLINE HCL [Concomitant]
  10. FOSINOPRIL [Concomitant]

REACTIONS (4)
  - CARDIO-RESPIRATORY ARREST [None]
  - DYSPNOEA [None]
  - INFUSION RELATED REACTION [None]
  - WHEEZING [None]
